FAERS Safety Report 7775100-9 (Version None)
Quarter: 2011Q3

REPORT INFORMATION
  Report Type: 
  Country: None (occurrence: None)
  Receive Date: 20110923
  Receipt Date: 20110922
  Transmission Date: 20111222
  Serious: Yes (Other)
  Sender: FDA-Public Use
  Company Number: JP-ROCHE-801953

PATIENT
  Age: 70 Year
  Sex: Male
  Weight: 48 kg

DRUGS (12)
  1. MIRCERA [Suspect]
     Indication: NEPHROGENIC ANAEMIA
     Route: 042
     Dates: start: 20110725, end: 20110819
  2. CARVEDILOL [Concomitant]
     Route: 048
     Dates: start: 20110401
  3. ALLOPURINOL [Concomitant]
     Route: 048
     Dates: start: 20061116
  4. OXAROL [Concomitant]
     Route: 042
     Dates: start: 20060616
  5. DOXAZOSIN MESYLATE [Concomitant]
     Route: 048
     Dates: start: 20061211
  6. AMLODIPINE [Concomitant]
     Route: 048
     Dates: start: 20090907
  7. HIBITANE [Concomitant]
     Indication: DERMATITIS
  8. CANDESARTAN CILEXETIL [Concomitant]
     Dosage: DRUG REPORTED AS UNISIA
     Route: 048
     Dates: start: 20100621
  9. ZOLPIDEM [Concomitant]
     Route: 048
     Dates: start: 20041018
  10. MAGMITT [Concomitant]
     Route: 048
     Dates: start: 20090907
  11. RABEPRAZOLE SODIUM [Concomitant]
     Route: 048
     Dates: start: 20100224
  12. SENNOSIDE [Concomitant]
     Route: 048
     Dates: start: 20041022

REACTIONS (1)
  - CEREBRAL HAEMORRHAGE [None]
